FAERS Safety Report 4450389-2 (Version None)
Quarter: 2004Q3

REPORT INFORMATION
  Report Type: 
  Country: None (occurrence: None)
  Receive Date: 20040915
  Receipt Date: 20040719
  Transmission Date: 20050211
  Serious: Yes (Hospitalization)
  Sender: FDA-Public Use
  Company Number: US-MERCK-0407USA01598

PATIENT
  Age: 39 Year
  Sex: Female
  Weight: 53 kg

DRUGS (4)
  1. TYLENOL [Concomitant]
     Route: 065
  2. ALBUTEROL [Concomitant]
     Route: 065
  3. CANCIDAS [Suspect]
     Indication: CHRONIC SINUSITIS
     Route: 042
     Dates: start: 20040607, end: 20040720
  4. CANCIDAS [Suspect]
     Route: 065
     Dates: start: 20040201, end: 20040401

REACTIONS (2)
  - ALOPECIA [None]
  - CHRONIC SINUSITIS [None]
